FAERS Safety Report 9007498 (Version 1)
Quarter: 2013Q1

REPORT INFORMATION
  Report Type: Spontaneous
  Country: US (occurrence: US)
  Receive Date: 20130111
  Receipt Date: 20130111
  Transmission Date: 20140127
  Serious: Yes (Other)
  Sender: FDA-Public Use
  Company Number: US-MERCK-0909USA03369

PATIENT
  Age: 22 Year
  Sex: Female
  Weight: 53.52 kg

DRUGS (1)
  1. SINGULAIR [Suspect]
     Indication: MULTIPLE ALLERGIES
     Dosage: 10 MG, ONCE
     Route: 048

REACTIONS (5)
  - Confusional state [Unknown]
  - Visual impairment [Unknown]
  - Headache [Unknown]
  - Eyelid oedema [Unknown]
  - Swelling face [Unknown]
